FAERS Safety Report 8978780 (Version 2)
Quarter: 2013Q1

REPORT INFORMATION
  Report Type: Spontaneous
  Country: US (occurrence: US)
  Receive Date: 20121220
  Receipt Date: 20130115
  Transmission Date: 20140127
  Serious: No
  Sender: FDA-Public Use
  Company Number: US-PFIZER INC-2012321717

PATIENT
  Age: 59 Year
  Sex: Female

DRUGS (9)
  1. LYRICA [Suspect]
     Dosage: A HIGHER DOSE
  2. LYRICA [Suspect]
     Dosage: 50 MG, 1 CAPSULE 2X/DAY
     Route: 048
  3. NORVASC [Suspect]
     Dosage: 10 MG, UNK
  4. LISINOPRIL W/HYDROCHLOROTHIAZIDE [Concomitant]
     Dosage: 20-12.5, UNK
  5. LOVASTATIN [Concomitant]
     Dosage: 20 MG, UNK
  6. MS CONTIN [Concomitant]
     Dosage: 30 MG, UNK
  7. CETIRIZINE [Concomitant]
     Dosage: 10 MG, UNK
  8. CELEXA [Concomitant]
     Dosage: 40 MG, UNK
  9. TOPROL XL [Concomitant]
     Dosage: 50, UNK

REACTIONS (2)
  - Drug intolerance [Unknown]
  - Condition aggravated [Unknown]
